FAERS Safety Report 6820091-8 (Version None)
Quarter: 2010Q3

REPORT INFORMATION
  Report Type: 
  Country: None (occurrence: None)
  Receive Date: 20100707
  Receipt Date: 20100629
  Transmission Date: 20110219
  Serious: Yes (Hospitalization)
  Sender: FDA-Public Use
  Company Number: B0664129A

PATIENT
  Sex: Male

DRUGS (4)
  1. LAMBIPOL [Suspect]
     Indication: SCHIZOAFFECTIVE DISORDER
     Route: 048
     Dates: start: 20100628
  2. RISPERDAL [Concomitant]
     Dosage: 9MG PER DAY
  3. NOSINAN [Concomitant]
     Dosage: 25DROP PER DAY
  4. ABILIFY [Concomitant]

REACTIONS (3)
  - HAEMORRHAGE [None]
  - INJURY [None]
  - POISONING [None]
